FAERS Safety Report 21983236 (Version 1)
Quarter: 2023Q1

REPORT INFORMATION
  Report Type: Report from Study
  Country: EG (occurrence: EG)
  Receive Date: 20230213
  Receipt Date: 20230213
  Transmission Date: 20230417
  Serious: Yes (Other)
  Sender: FDA-Public Use
  Company Number: EG-002147023-NVSC2023EG031906

PATIENT
  Age: 64 Year
  Sex: Female

DRUGS (1)
  1. METHOTREXATE [Suspect]
     Active Substance: METHOTREXATE
     Indication: Psoriatic arthropathy
     Dosage: 6 DOSAGE FORM, QW (6 TABLETS ONE DAY FOR A WEEK)
     Route: 065
     Dates: start: 202101, end: 202210

REACTIONS (7)
  - Psoriasis [Not Recovered/Not Resolved]
  - Hernia [Unknown]
  - Pyuria [Unknown]
  - Inflammation [Unknown]
  - Renal disorder [Unknown]
  - Laboratory test abnormal [Not Recovered/Not Resolved]
  - Product availability issue [Not Recovered/Not Resolved]

NARRATIVE: CASE EVENT DATE: 20221001
